FAERS Safety Report 13573920 (Version 3)
Quarter: 2017Q2

REPORT INFORMATION
  Report Type: Spontaneous
  Country: JP (occurrence: JP)
  Receive Date: 20170523
  Receipt Date: 20170630
  Transmission Date: 20170830
  Serious: Yes (Other)
  Sender: FDA-Public Use
  Company Number: PHJP2017JP014588

PATIENT
  Sex: Female

DRUGS (4)
  1. EXELON PATCH [Suspect]
     Active Substance: RIVASTIGMINE
     Dosage: 4.6 MG/24H (PATCH 5 CM2, 9 MG OF RIVASTIGMINE BASE)
     Route: 062
     Dates: start: 20170324, end: 20170406
  2. EXELON PATCH [Suspect]
     Active Substance: RIVASTIGMINE
     Dosage: 6.9 MG/24 H (PATCH 7.5 CM2, 13.5 MG OF RIVASTIGMIN BASE)
     Route: 062
     Dates: start: 20170407, end: 20170420
  3. SEROQUEL [Concomitant]
     Active Substance: QUETIAPINE FUMARATE
     Indication: DEPRESSION
     Dosage: 25 MG, UNK
     Route: 048
  4. EXELON PATCH [Suspect]
     Active Substance: RIVASTIGMINE
     Indication: DEMENTIA ALZHEIMER^S TYPE
     Dosage: 1.9 MG/24H (PATCH 2.5 CM2, 4.5 MG OF RIVASTIGMINE BASE)
     Route: 062
     Dates: start: 20170310, end: 20170323

REACTIONS (2)
  - Concomitant disease aggravated [Recovering/Resolving]
  - Depression suicidal [Recovering/Resolving]

NARRATIVE: CASE EVENT DATE: 201703
